FAERS Safety Report 21272070 (Version 1)
Quarter: 2022Q3

REPORT INFORMATION
  Report Type: Spontaneous
  Country: US (occurrence: US)
  Receive Date: 20220830
  Receipt Date: 20220830
  Transmission Date: 20221027
  Serious: Yes (Other)
  Sender: FDA-Public Use
  Company Number: US-AMERICAN REGENT INC-2022000660

PATIENT
  Sex: Female
  Weight: 98.413 kg

DRUGS (9)
  1. FERRIC CARBOXYMALTOSE [Suspect]
     Active Substance: FERRIC CARBOXYMALTOSE
     Indication: Iron deficiency anaemia
     Dosage: 750 MILLIGRAM IN 100 ML 0.9% SODIUM CHLORIDE, SINGLE
     Route: 042
     Dates: start: 20200710, end: 20200710
  2. FERRIC CARBOXYMALTOSE [Suspect]
     Active Substance: FERRIC CARBOXYMALTOSE
     Indication: Malabsorption
     Dosage: 750 MILLIGRAM IN 100 ML 0.9% SODIUM CHLORIDE, SINGLE
     Route: 042
     Dates: start: 20200717, end: 20200717
  3. DULCOLAX (BISACODYL) [Concomitant]
     Active Substance: BISACODYL
     Indication: Constipation
     Dosage: 5 MILLIGRAM, QD, PRN
     Route: 048
     Dates: start: 20190829, end: 20200829
  4. MIRALAX [Concomitant]
     Active Substance: POLYETHYLENE GLYCOL 3350
     Indication: Constipation
     Dosage: 17 GRAM IN 4-8 OUNCES OF WATER, QD
     Route: 048
     Dates: start: 20190926
  5. ZYRTEC [Concomitant]
     Active Substance: CETIRIZINE HYDROCHLORIDE
     Indication: Product used for unknown indication
     Dosage: 10 MILLIGRAM, QD
     Route: 048
     Dates: start: 202003, end: 20200804
  6. THERAGRAN [VITAMINS NOS] [Concomitant]
     Indication: Hypovitaminosis
     Dosage: 1 DOSAGE FORM, QD
     Route: 048
     Dates: start: 20200325
  7. NEURONTIN [Concomitant]
     Active Substance: GABAPENTIN
     Indication: Neuropathy peripheral
     Dosage: 600 MILLIGRAM, TID
     Route: 048
     Dates: start: 20191115
  8. NEURONTIN [Concomitant]
     Active Substance: GABAPENTIN
     Indication: Hot flush
  9. ROBAXIN [Concomitant]
     Active Substance: METHOCARBAMOL
     Indication: Muscle spasms
     Dosage: 500 MILLIGRAM, TID, PRN
     Route: 048
     Dates: start: 20200623

REACTIONS (1)
  - Hypophosphataemia [Unknown]
